FAERS Safety Report 12205842 (Version 1)
Quarter: 2016Q1

REPORT INFORMATION
  Report Type: Spontaneous
  Country: US (occurrence: US)
  Receive Date: 20160323
  Receipt Date: 20160323
  Transmission Date: 20160526
  Serious: Yes (Death, Other)
  Sender: FDA-Public Use
  Company Number: US-JNJFOC-20160321189

PATIENT

DRUGS (2)
  1. ACETAMINOPHEN. [Suspect]
     Active Substance: ACETAMINOPHEN
     Indication: PRODUCT USED FOR UNKNOWN INDICATION
     Route: 065
  2. ACETAMINOPHEN. [Suspect]
     Active Substance: ACETAMINOPHEN
     Route: 065

REACTIONS (8)
  - Anaphylactoid reaction [Unknown]
  - Prothrombin time prolonged [Unknown]
  - Hepatic failure [Fatal]
  - Suicide attempt [Unknown]
  - Toxicity to various agents [Fatal]
  - Blood creatinine increased [Unknown]
  - Metabolic acidosis [Unknown]
  - Completed suicide [Fatal]
